FAERS Safety Report 5458220-3 (Version None)
Quarter: 2007Q3

REPORT INFORMATION
  Report Type: 
  Country: None (occurrence: None)
  Receive Date: 20070919
  Receipt Date: 20070425
  Transmission Date: 20080115
  Serious: No
  Sender: FDA-Public Use
  Company Number: US-ASTRAZENECA-2007UW05693

PATIENT
  Age: 61 Year
  Sex: Female
  Weight: 74.8 kg

DRUGS (3)
  1. SEROQUEL [Suspect]
     Indication: BIPOLAR DISORDER
     Route: 048
     Dates: start: 20061201
  2. LITHIUM [Concomitant]
  3. EFFEXOR [Concomitant]

REACTIONS (7)
  - ALOPECIA [None]
  - AMNESIA [None]
  - DRY MOUTH [None]
  - HUNGER [None]
  - MUSCULOSKELETAL STIFFNESS [None]
  - SPEECH DISORDER [None]
  - WEIGHT INCREASED [None]
